FAERS Safety Report 8192616-4 (Version None)
Quarter: 2012Q1

REPORT INFORMATION
  Report Type: 
  Country: None (occurrence: None)
  Receive Date: 20120308
  Receipt Date: 20120229
  Transmission Date: 20120608
  Serious: Yes (Hospitalization)
  Sender: FDA-Public Use
  Company Number: US-US-EMD SERONO, INC.-7116297

PATIENT
  Sex: Female
  Weight: 77 kg

DRUGS (5)
  1. AMITRIPTYLINE HCL [Concomitant]
     Indication: SLEEP DISORDER
  2. NEURONTIN [Concomitant]
     Indication: NEURALGIA
  3. MELOXICAM [Concomitant]
     Indication: OSTEOARTHRITIS
  4. REBIF [Suspect]
     Route: 058
     Dates: start: 20100801
  5. REBIF [Suspect]
     Indication: MULTIPLE SCLEROSIS
     Route: 058
     Dates: end: 20100501

REACTIONS (4)
  - FATIGUE [None]
  - CHOLECYSTITIS ACUTE [None]
  - CHOLECYSTITIS INFECTIVE [None]
  - HERPES ZOSTER [None]
